FAERS Safety Report 15349896 (Version 2)
Quarter: 2018Q4

REPORT INFORMATION
  Report Type: Spontaneous
  Country: AR (occurrence: AR)
  Receive Date: 20180905
  Receipt Date: 20180905
  Transmission Date: 20190204
  Serious: Yes (Other)
  Sender: FDA-Public Use
  Company Number: PHHY2018AR087733

PATIENT
  Sex: Female

DRUGS (2)
  1. ALCON LAGRIMA II (ALC) (DEXTRAN 70\HYPROMELLOSE) [Suspect]
     Active Substance: DEXTRAN 70\HYPROMELLOSES
     Indication: DRY EYE
     Dosage: UNK
     Route: 047
     Dates: end: 201807
  2. DIOVAN [Suspect]
     Active Substance: VALSARTAN
     Indication: HYPERTENSION
     Dosage: 80 OT, QD
     Route: 065

REACTIONS (3)
  - Cataract [Unknown]
  - Lacrimation decreased [Unknown]
  - Arrhythmia [Unknown]
